FAERS Safety Report 11199316 (Version 2)
Quarter: 2015Q3

REPORT INFORMATION
  Report Type: Spontaneous
  Country: US (occurrence: US)
  Receive Date: 20150618
  Receipt Date: 20150706
  Transmission Date: 20151125
  Serious: Yes (Hospitalization, Other)
  Sender: FDA-Public Use
  Company Number: US-PFIZER INC-2015203564

PATIENT
  Age: 67 Year
  Sex: Female

DRUGS (2)
  1. EFFEXOR XR [Suspect]
     Active Substance: VENLAFAXINE HYDROCHLORIDE
     Indication: ANXIETY
     Dosage: 75 MG, 1X/DAY
     Dates: start: 2001
  2. PREDNISONE. [Suspect]
     Active Substance: PREDNISONE
     Indication: POISONING
     Dosage: UNK

REACTIONS (4)
  - Herpes zoster [Unknown]
  - Pain [Unknown]
  - Rash [Unknown]
  - Poisoning [Unknown]
